FAERS Safety Report 5038499-2 (Version None)
Quarter: 2006Q2

REPORT INFORMATION
  Report Type: 
  Country: None (occurrence: None)
  Receive Date: 20060626
  Receipt Date: 20060626
  Transmission Date: 20061013
  Serious: Yes (Other)
  Sender: FDA-Public Use
  Company Number: None

PATIENT
  Age: 18 Year
  Sex: Female
  Weight: 61.2356 kg

DRUGS (2)
  1. SOTRET [Suspect]
     Indication: ACNE
     Dosage: 40 MG  BID - LATER QD - PO
     Route: 048
     Dates: start: 20060401, end: 20060101
  2. SOTRET [Suspect]
     Indication: DRUG INEFFECTIVE
     Dosage: 40 MG  BID - LATER QD - PO
     Route: 048
     Dates: start: 20060401, end: 20060101

REACTIONS (3)
  - HYPOAESTHESIA [None]
  - HYPOREFLEXIA [None]
  - PARAESTHESIA [None]
